FAERS Safety Report 8497691 (Version 2)
Quarter: 2013Q1

REPORT INFORMATION
  Report Type: Spontaneous
  Country: IT (occurrence: IT)
  Receive Date: 20120406
  Receipt Date: 20130128
  Transmission Date: 20140127
  Serious: Yes (Life-Threatening, Other)
  Sender: FDA-Public Use
  Company Number: IT-PFIZER INC-2012083913

PATIENT
  Age: 62 Year
  Sex: Male

DRUGS (4)
  1. PIPERACILLIN/TAZOBACTAM [Suspect]
     Indication: PNEUMONIA
     Dosage: 4.5 GRAMS, UNK
     Route: 042
  2. THEOPHYLLINE [Concomitant]
     Dosage: UNK
     Route: 042
  3. METHYLPREDNISOLONE SODIUM SUCCINATE [Concomitant]
     Dosage: UNK
     Route: 042
  4. FUROSEMIDE [Concomitant]
     Dosage: UNK
     Route: 042

REACTIONS (7)
  - Kounis syndrome [Recovering/Resolving]
  - Rash erythematous [None]
  - Rash pruritic [None]
  - Tremor [None]
  - Hypercholesterolaemia [None]
  - Pneumonia [None]
  - Hyperglycaemia [None]
